FAERS Safety Report 12724362 (Version 1)
Quarter: 2016Q3

REPORT INFORMATION
  Report Type: Other
  Country: US (occurrence: US)
  Receive Date: 20160908
  Receipt Date: 20160908
  Transmission Date: 20161109
  Serious: No
  Sender: FDA-Public Use
  Company Number: US-COL_22559_2016

PATIENT
  Sex: Female

DRUGS (4)
  1. PROZAC [Concomitant]
     Active Substance: FLUOXETINE HYDROCHLORIDE
     Indication: PRODUCT USED FOR UNKNOWN INDICATION
     Dosage: NI/
  2. VALICORE [Concomitant]
     Indication: PRODUCT USED FOR UNKNOWN INDICATION
     Dosage: NI/
  3. COLGATE TOTAL FRESH MINT STRIPE [Suspect]
     Active Substance: SODIUM FLUORIDE\TRICLOSAN
     Indication: PRODUCT USED FOR UNKNOWN INDICATION
     Dosage: A PEA ON THE TOOTHBRUSH/BID OR TID/
     Route: 048
     Dates: end: 20150331
  4. ANTIVIRAL MEDICATIONS [Concomitant]
     Active Substance: UNSPECIFIED INGREDIENT
     Indication: MOUTH ULCERATION
     Dosage: NI/

REACTIONS (2)
  - Tongue ulceration [Not Recovered/Not Resolved]
  - Condition aggravated [Not Recovered/Not Resolved]
